FAERS Safety Report 12689289 (Version 1)
Quarter: 2016Q3

REPORT INFORMATION
  Report Type: Spontaneous
  Country: US (occurrence: None)
  Receive Date: 20160825
  Receipt Date: 20160825
  Transmission Date: 20161109
  Serious: Yes (Hospitalization, Other)
  Sender: FDA-Public Use
  Company Number: None

PATIENT
  Age: 56 Year
  Sex: Female
  Weight: 60.33 kg

DRUGS (6)
  1. ATORVASTATIN CALCIUM TABLET, 20 MG APOTEX [Suspect]
     Active Substance: ATORVASTATIN CALCIUM
     Indication: BLOOD CHOLESTEROL INCREASED
     Route: 048
  2. ISONZAID [Concomitant]
  3. VITAMIN B [Concomitant]
     Active Substance: VITAMIN B
  4. METHOTREXATE. [Concomitant]
     Active Substance: METHOTREXATE
  5. PREDNISONE. [Concomitant]
     Active Substance: PREDNISONE
  6. METFORMIN [Concomitant]
     Active Substance: METFORMIN HYDROCHLORIDE

REACTIONS (6)
  - Myositis [None]
  - Muscular weakness [None]
  - Dysphagia [None]
  - Choking [None]
  - Decreased appetite [None]
  - Fall [None]

NARRATIVE: CASE EVENT DATE: 20160601
